FAERS Safety Report 6910015-7 (Version None)
Quarter: 2010Q3

REPORT INFORMATION
  Report Type: 
  Country: None (occurrence: None)
  Receive Date: 20100806
  Receipt Date: 20100726
  Transmission Date: 20110219
  Serious: No
  Sender: FDA-Public Use
  Company Number: US-BIOGENIDEC-2010BI026271

PATIENT
  Age: 49 Year
  Sex: Female

DRUGS (1)
  1. AVONEX [Suspect]
     Indication: MULTIPLE SCLEROSIS
     Route: 030
     Dates: start: 20100620

REACTIONS (5)
  - ASTHENIA [None]
  - HYPERSOMNIA [None]
  - INSOMNIA [None]
  - MOBILITY DECREASED [None]
  - NAUSEA [None]
